FAERS Safety Report 9364492 (Version 1)
Quarter: 2013Q3

REPORT INFORMATION
  Report Type: Spontaneous
  Country: JP (occurrence: None)
  Receive Date: 20130619
  Receipt Date: 20130619
  Transmission Date: 20140515
  Serious: Yes (Other)
  Sender: FDA-Public Use
  Company Number: JP-1198708

PATIENT
  Sex: Female

DRUGS (1)
  1. VIGAMOX [Suspect]
     Indication: INFECTION PROPHYLAXIS
     Route: 047
     Dates: start: 20130605, end: 20130605

REACTIONS (2)
  - Anaphylactoid reaction [None]
  - Eye pain [None]
